FAERS Safety Report 9754321 (Version 1)
Quarter: 2013Q4

REPORT INFORMATION
  Report Type: Spontaneous
  Country: FR (occurrence: FR)
  Receive Date: 20131213
  Receipt Date: 20131213
  Transmission Date: 20140711
  Serious: Yes (Hospitalization)
  Sender: FDA-Public Use
  Company Number: FR-BRISTOL-MYERS SQUIBB COMPANY-19903210

PATIENT
  Age: 81 Year
  Sex: Female

DRUGS (8)
  1. GLUCOPHAGE TABS 1000 MG [Suspect]
     Route: 048
  2. CERIS [Concomitant]
  3. GALVUS [Concomitant]
  4. ACTONEL [Concomitant]
  5. CALCITE [Concomitant]
  6. VITAMIN D3 [Concomitant]
  7. PRAXILENE [Concomitant]
  8. APIDRA [Concomitant]
     Indication: BLOOD GLUCOSE ABNORMAL

REACTIONS (5)
  - Lactic acidosis [Recovered/Resolved]
  - Cardiac failure [Unknown]
  - Pulmonary embolism [Unknown]
  - Abdominal wall haematoma [Unknown]
  - Shock haemorrhagic [Unknown]
